FAERS Safety Report 23347748 (Version 2)
Quarter: 2024Q1

REPORT INFORMATION
  Report Type: Spontaneous
  Country: US (occurrence: US)
  Receive Date: 20231228
  Receipt Date: 20240109
  Transmission Date: 20240410
  Serious: Yes (Other)
  Sender: FDA-Public Use
  Company Number: US-PFIZER INC-PV202300205273

PATIENT
  Age: 70 Year
  Sex: Male
  Weight: 124.72 kg

DRUGS (1)
  1. SPIRONOLACTONE [Suspect]
     Active Substance: SPIRONOLACTONE
     Dosage: UNK
     Route: 048
     Dates: start: 202203, end: 202312

REACTIONS (3)
  - Cardiac failure congestive [Recovered/Resolved]
  - Atrial fibrillation [Recovered/Resolved]
  - Blood potassium increased [Unknown]

NARRATIVE: CASE EVENT DATE: 20231210
